FAERS Safety Report 16313591 (Version 1)
Quarter: 2019Q2

REPORT INFORMATION
  Report Type: Spontaneous
  Country: US (occurrence: US)
  Receive Date: 20190515
  Receipt Date: 20190515
  Transmission Date: 20190711
  Serious: No
  Sender: FDA-Public Use
  Company Number: US-ELI_LILLY_AND_COMPANY-US201904009078

PATIENT
  Sex: Male

DRUGS (1)
  1. EMGALITY [Suspect]
     Active Substance: GALCANEZUMAB-GNLM
     Indication: MIGRAINE
     Dosage: UNK UNK, UNKNOWN
     Route: 065
     Dates: start: 201811

REACTIONS (13)
  - Feeling cold [Unknown]
  - Abdominal distension [Unknown]
  - Morning sickness [Unknown]
  - Nasal septum deviation [Unknown]
  - Abdominal discomfort [Unknown]
  - Abdominal pain upper [Unknown]
  - Nausea [Unknown]
  - Product dose omission [Unknown]
  - Food refusal [Unknown]
  - Dizziness postural [Unknown]
  - Tremor [Unknown]
  - Hypotension [Unknown]
  - Flatulence [Unknown]

NARRATIVE: CASE EVENT DATE: 201902
